FAERS Safety Report 6314128-2 (Version None)
Quarter: 2009Q3

REPORT INFORMATION
  Report Type: 
  Country: None (occurrence: None)
  Receive Date: 20090818
  Receipt Date: 20090813
  Transmission Date: 20100115
  Serious: Yes (Other)
  Sender: FDA-Public Use
  Company Number: IT-ABBOTT-09P-083-0584516-00

PATIENT
  Sex: Male

DRUGS (1)
  1. DEPAKIN [Suspect]
     Indication: EPILEPSY
     Route: 048
     Dates: start: 20080701

REACTIONS (3)
  - AMINO ACID LEVEL ABNORMAL [None]
  - GLUCOSE URINE PRESENT [None]
  - RENAL TUBULAR DISORDER [None]
